FAERS Safety Report 9731546 (Version 1)
Quarter: 2013Q4

REPORT INFORMATION
  Report Type: Spontaneous
  Country: US (occurrence: None)
  Receive Date: 20131204
  Receipt Date: 20131204
  Transmission Date: 20140711
  Serious: No
  Sender: FDA-Public Use
  Company Number: None

PATIENT
  Age: 41 Year
  Sex: Female
  Weight: 63.5 kg

DRUGS (1)
  1. LAILA [Suspect]
     Indication: NEOPLASM MALIGNANT
     Dosage: 2 PILLS; ONCE DAILY
     Route: 048
     Dates: start: 20130517, end: 20131201

REACTIONS (1)
  - Alopecia [None]
